FAERS Safety Report 9403281 (Version 1)
Quarter: 2013Q3

REPORT INFORMATION
  Report Type: Spontaneous
  Country: US (occurrence: None)
  Receive Date: 20130715
  Receipt Date: 20130715
  Transmission Date: 20140515
  Serious: Yes (Hospitalization)
  Sender: FDA-Public Use
  Company Number: None

PATIENT
  Age: 57 Year
  Sex: Male
  Weight: 143.5 kg

DRUGS (1)
  1. HEPARIN [Suspect]
     Dates: start: 20130412

REACTIONS (1)
  - Heparin-induced thrombocytopenia [None]
